FAERS Safety Report 8841935 (Version 3)
Quarter: 2013Q2

REPORT INFORMATION
  Report Type: Spontaneous
  Country: US (occurrence: US)
  Receive Date: 20121016
  Receipt Date: 20130528
  Transmission Date: 20140414
  Serious: Yes (Hospitalization)
  Sender: FDA-Public Use
  Company Number: US-BAYER-2012-106374

PATIENT
  Age: 37 Year
  Sex: Female
  Weight: 55.78 kg

DRUGS (4)
  1. GIANVI [Suspect]
     Indication: CONTRACEPTION
     Dosage: UNK
     Dates: start: 201009, end: 201012
  2. GIANVI [Suspect]
     Indication: PREMENSTRUAL SYNDROME
  3. FLONASE [Concomitant]
  4. VICODIN [Concomitant]

REACTIONS (11)
  - Hemianopia homonymous [None]
  - Cerebellar infarction [None]
  - Cerebral infarction [None]
  - Scotoma [None]
  - Adverse event [None]
  - Injury [None]
  - Pain [None]
  - General physical health deterioration [None]
  - Anxiety [None]
  - Emotional distress [None]
  - Pain [None]
